FAERS Safety Report 5210361-1 (Version None)
Quarter: 2007Q1

REPORT INFORMATION
  Report Type: 
  Country: None (occurrence: None)
  Receive Date: 20070117
  Receipt Date: 20070111
  Transmission Date: 20070707
  Serious: Yes (Life-Threatening, Hospitalization)
  Sender: FDA-Public Use
  Company Number: GB-BRISTOL-MYERS SQUIBB COMPANY-13596747

PATIENT
  Age: 61 Year
  Sex: Female
  Weight: 90 kg

DRUGS (8)
  1. CETUXIMAB [Suspect]
     Indication: COLORECTAL CANCER
     Route: 042
     Dates: start: 20061117, end: 20061117
  2. OXALIPLATIN [Suspect]
     Indication: COLORECTAL CANCER
     Route: 042
     Dates: start: 20061117, end: 20061117
  3. FLUOROURACIL [Suspect]
     Indication: COLORECTAL CANCER
     Route: 042
     Dates: start: 20061117, end: 20061117
  4. FENTANYL TRANSDERMAL SYSTEM [Concomitant]
     Dates: start: 20061011
  5. ORAMORPH SR [Concomitant]
     Route: 048
     Dates: start: 20061011, end: 20061121
  6. AMLODIPINE [Concomitant]
     Route: 048
     Dates: end: 20061121
  7. BENDROFLUAZIDE [Concomitant]
     Route: 048
     Dates: end: 20061121
  8. CYCLIZINE [Concomitant]
     Dates: end: 20061121

REACTIONS (1)
  - CEREBROVASCULAR ACCIDENT [None]
